FAERS Safety Report 11012233 (Version 1)
Quarter: 2015Q2

REPORT INFORMATION
  Report Type: Spontaneous
  Country: US (occurrence: None)
  Receive Date: 20150410
  Receipt Date: 20150410
  Transmission Date: 20150821
  Serious: No
  Sender: FDA-Public Use
  Company Number: None

PATIENT
  Age: 75 Year
  Sex: Female

DRUGS (1)
  1. TIKOSYN [Suspect]
     Active Substance: DOFETILIDE
     Indication: ILL-DEFINED DISORDER
     Route: 048
     Dates: start: 201503, end: 201504

REACTIONS (2)
  - Electrocardiogram abnormal [None]
  - Cough [None]
